FAERS Safety Report 11795762 (Version 1)
Quarter: 2015Q4

REPORT INFORMATION
  Report Type: Spontaneous
  Country: US (occurrence: US)
  Receive Date: 20151202
  Receipt Date: 20151202
  Transmission Date: 20160305
  Serious: No
  Sender: FDA-Public Use
  Company Number: US-BAUSCH-BL-2015-023617

PATIENT
  Age: 42 Year
  Sex: Female

DRUGS (1)
  1. ONEXTON [Suspect]
     Active Substance: BENZOYL PEROXIDE\CLINDAMYCIN PHOSPHATE
     Indication: ACNE
     Route: 061
     Dates: start: 20151008

REACTIONS (2)
  - Erythema [Recovering/Resolving]
  - Application site pain [Recovering/Resolving]
